FAERS Safety Report 16718901 (Version 1)
Quarter: 2019Q3

REPORT INFORMATION
  Report Type: Spontaneous
  Country: IT (occurrence: IT)
  Receive Date: 20190820
  Receipt Date: 20190820
  Transmission Date: 20191005
  Serious: Yes (Other)
  Sender: FDA-Public Use
  Company Number: IT-TEVA-2019-IT-1093914

PATIENT
  Age: 9 Year
  Sex: Male

DRUGS (2)
  1. TACHIPIRINA 120 MG/5 ML SCIROPPO [Concomitant]
     Indication: HYPERPYREXIA
     Dosage: 120 MG / 5 ML ,1 DOSAGE FORM, 1 DAY
     Route: 048
     Dates: start: 20190725, end: 20190725
  2. IBUPROFEN. [Suspect]
     Active Substance: IBUPROFEN
     Indication: HYPERPYREXIA
     Dosage: 1 DOSAGE FORM, 1 DAY
     Route: 048
     Dates: start: 20190725, end: 20190725

REACTIONS (2)
  - Lip oedema [Recovering/Resolving]
  - Swelling [Recovering/Resolving]

NARRATIVE: CASE EVENT DATE: 20190725
